FAERS Safety Report 5318219-4 (Version None)
Quarter: 2007Q2

REPORT INFORMATION
  Report Type: 
  Country: None (occurrence: None)
  Receive Date: 20070507
  Receipt Date: 20070427
  Transmission Date: 20071010
  Serious: Yes (Other)
  Sender: FDA-Public Use
  Company Number: CN-PFIZER INC-2007031888

PATIENT
  Age: 56 Year
  Sex: Male

DRUGS (4)
  1. FRAGMIN [Suspect]
     Indication: ANTICOAGULANT THERAPY
     Route: 042
     Dates: start: 20070404, end: 20070409
  2. FRAGMIN [Suspect]
     Dates: start: 20070412
  3. LIPITOR [Concomitant]
     Route: 048
  4. ANTIHYPERTENSIVES [Concomitant]

REACTIONS (1)
  - CORONARY ARTERY EMBOLISM [None]
